FAERS Safety Report 16848466 (Version 1)
Quarter: 2019Q3

REPORT INFORMATION
  Report Type: Spontaneous
  Country: US (occurrence: US)
  Receive Date: 20190925
  Receipt Date: 20190925
  Transmission Date: 20191005
  Serious: No
  Sender: FDA-Public Use
  Company Number: US-JNJFOC-20190926149

PATIENT
  Age: 88 Year
  Sex: Female
  Weight: 61.74 kg

DRUGS (1)
  1. TYLENOL [Suspect]
     Active Substance: ACETAMINOPHEN
     Indication: FRACTURE PAIN
     Dosage: EVERY 5 HOURS OR SO
     Route: 048
     Dates: start: 201909

REACTIONS (2)
  - Inappropriate schedule of product administration [Unknown]
  - Gastric disorder [Recovered/Resolved]

NARRATIVE: CASE EVENT DATE: 201909
